FAERS Safety Report 9175396 (Version 2)
Quarter: 2013Q1

REPORT INFORMATION
  Report Type: Spontaneous
  Country: US (occurrence: US)
  Receive Date: 20130320
  Receipt Date: 20130320
  Transmission Date: 20140127
  Serious: No
  Sender: FDA-Public Use
  Company Number: US-009507513-1303USA004989

PATIENT
  Sex: Male
  Weight: 86.17 kg

DRUGS (5)
  1. LOTRIMIN AF [Suspect]
     Indication: TINEA CRURIS
     Dosage: UNK, Q48H
     Route: 061
     Dates: start: 201206, end: 201206
  2. LOTRIMIN AF [Suspect]
     Indication: MEDICAL OBSERVATION
  3. ZANTAC [Concomitant]
     Indication: ULCER
     Dosage: UNK, UNKNOWN
  4. HYDROCHLOROTHIAZIDE [Concomitant]
     Indication: BLOOD PRESSURE
     Dosage: UNK, UNKNOWN
  5. PREVACID [Concomitant]
     Indication: GASTROOESOPHAGEAL REFLUX DISEASE
     Dosage: UNK, UNKNOWN

REACTIONS (2)
  - Burning sensation [Unknown]
  - Pain [Unknown]
